FAERS Safety Report 20308083 (Version 1)
Quarter: 2022Q1

REPORT INFORMATION
  Report Type: Spontaneous
  Country: FR (occurrence: FR)
  Receive Date: 20220107
  Receipt Date: 20220107
  Transmission Date: 20220424
  Serious: Yes (Congenital Anomaly)
  Sender: FDA-Public Use
  Company Number: FR-ABBVIE-22K-056-4224260-00

PATIENT
  Sex: Female

DRUGS (3)
  1. VALPROATE SODIUM [Suspect]
     Active Substance: VALPROATE SODIUM
     Indication: Maternal exposure timing unspecified
     Route: 064
  2. LEVOTHYROXINE SODIUM [Suspect]
     Active Substance: LEVOTHYROXINE SODIUM
     Indication: Maternal exposure timing unspecified
     Route: 064
  3. CAFFEINE\PHENOBARBITAL [Suspect]
     Active Substance: CAFFEINE\PHENOBARBITAL
     Indication: Maternal exposure timing unspecified
     Route: 064

REACTIONS (7)
  - Language disorder [Not Recovered/Not Resolved]
  - Aphasia [Not Recovered/Not Resolved]
  - Sleep apnoea syndrome [Not Recovered/Not Resolved]
  - Intellectual disability [Not Recovered/Not Resolved]
  - Kyphosis [Not Recovered/Not Resolved]
  - Learning disorder [Not Recovered/Not Resolved]
  - Foetal exposure during pregnancy [Not Recovered/Not Resolved]

NARRATIVE: CASE EVENT DATE: 20070726
